FAERS Safety Report 16709677 (Version 2)
Quarter: 2019Q3

REPORT INFORMATION
  Report Type: Spontaneous
  Country: US (occurrence: US)
  Receive Date: 20190816
  Receipt Date: 20190920
  Transmission Date: 20191004
  Serious: Yes (Hospitalization)
  Sender: FDA-Public Use
  Company Number: US-SAOL THERAPEUTICS-2019SAO00333

PATIENT
  Age: 51 Year
  Sex: Female
  Weight: 99.6 kg

DRUGS (15)
  1. TIZANIDINE. [Concomitant]
     Active Substance: TIZANIDINE
     Dosage: 4 MG, 2X/DAY
     Route: 048
  2. FLOMAX [Concomitant]
     Active Substance: TAMSULOSIN HYDROCHLORIDE
     Dosage: 0.4 MG, 1X/DAY
     Route: 048
  3. TRIAMCINOLONE [Concomitant]
     Active Substance: TRIAMCINOLONE
     Dosage: 1 DOSAGE UNITS, 2X/DAY
     Route: 061
  4. DOCUSATE [Concomitant]
     Active Substance: DOCUSATE
     Dosage: 100 CAPSULES, 2X/DAY
     Route: 048
  5. LIORESAL [Suspect]
     Active Substance: BACLOFEN
     Indication: MUSCLE SPASTICITY
     Dosage: 75 ?G, \DAY
     Route: 037
  6. BACLOFEN (ORAL) [Concomitant]
     Active Substance: BACLOFEN
     Dosage: UNK
     Route: 048
  7. FAMOTIDINE. [Concomitant]
     Active Substance: FAMOTIDINE
     Dosage: 40 MG, 2X/DAY
     Route: 048
  8. OXYCODONE [Concomitant]
     Active Substance: OXYCODONE
     Dosage: 10 MG, UP TO 6X/DAY
     Route: 048
  9. PROTONIX [Concomitant]
     Active Substance: PANTOPRAZOLE SODIUM
     Dosage: 40 MG, 1X/DAY
     Route: 048
  10. LIORESAL [Suspect]
     Active Substance: BACLOFEN
     Indication: MUSCLE SPASTICITY
     Dosage: 150 ?G, \DAY
     Route: 037
  11. SENNA [Concomitant]
     Active Substance: SENNA LEAF\SENNOSIDES\SENNOSIDES A AND B
     Dosage: 8.6 MG, AS NEEDED
     Route: 048
  12. BETAMETHASONE. [Concomitant]
     Active Substance: BETAMETHASONE
     Dosage: 1 DOSAGE UNITS, 2X/DAY
     Route: 061
  13. MORPHINE [Concomitant]
     Active Substance: MORPHINE
     Dosage: 15 MG, 2X/DAY
     Route: 048
  14. LIDODERM [Concomitant]
     Active Substance: LIDOCAINE
     Dosage: 1 DOSAGE UNITS, 1X/DAY
     Route: 061
  15. TRIAMCINOLONE [Concomitant]
     Active Substance: TRIAMCINOLONE
     Dosage: 1 DOSAGE UNITS, 2X/DAY

REACTIONS (4)
  - Therapeutic response decreased [Recovered/Resolved]
  - Implant site infection [Recovering/Resolving]
  - Sepsis [Recovering/Resolving]
  - Device dislocation [Recovered/Resolved]

NARRATIVE: CASE EVENT DATE: 2019
